FAERS Safety Report 6126651-4 (Version None)
Quarter: 2009Q1

REPORT INFORMATION
  Report Type: 
  Country: None (occurrence: None)
  Receive Date: 20090320
  Receipt Date: 20090309
  Transmission Date: 20090719
  Serious: Yes (Hospitalization)
  Sender: FDA-Public Use
  Company Number: DE-PFIZER INC-2009179767

PATIENT

DRUGS (1)
  1. ZELDOX [Suspect]
     Indication: SCHIZOPHRENIA, PARANOID TYPE
     Dosage: 80 MG TWICE DAILY
     Route: 048
     Dates: start: 20080101

REACTIONS (1)
  - LIVER FUNCTION TEST ABNORMAL [None]
